FAERS Safety Report 19134946 (Version 5)
Quarter: 2023Q4

REPORT INFORMATION
  Report Type: Spontaneous
  Country: US (occurrence: US)
  Receive Date: 20210414
  Receipt Date: 20231024
  Transmission Date: 20240110
  Serious: No
  Sender: FDA-Public Use
  Company Number: US-PFIZER INC-2021302678

PATIENT
  Age: 67 Year
  Sex: Male

DRUGS (1)
  1. XELJANZ [Suspect]
     Active Substance: TOFACITINIB CITRATE
     Dosage: 5 MG

REACTIONS (13)
  - Therapeutic product effect incomplete [Unknown]
  - Hypoacusis [Unknown]
  - Pain [Unknown]
  - Inflammation [Unknown]
  - Memory impairment [Unknown]
  - Gout [Unknown]
  - Onychomycosis [Unknown]
  - Headache [Unknown]
  - Photophobia [Unknown]
  - Nausea [Unknown]
  - Illness [Unknown]
  - Blood cholesterol abnormal [Unknown]
  - Cardiac disorder [Unknown]

NARRATIVE: CASE EVENT DATE: 20210316
